FAERS Safety Report 7819341-0 (Version None)
Quarter: 2011Q4

REPORT INFORMATION
  Report Type: 
  Country: None (occurrence: None)
  Receive Date: 20111018
  Receipt Date: 20110405
  Transmission Date: 20120403
  Serious: No
  Sender: FDA-Public Use
  Company Number: US-ASTRAZENECA-2011SE19097

PATIENT
  Age: 47 Year
  Sex: Male

DRUGS (6)
  1. VITAMIN TAB [Concomitant]
  2. ALBUTEROL [Concomitant]
     Dosage: PRN
     Route: 065
  3. ROBITUSSIN DM [Concomitant]
     Indication: RHINORRHOEA
  4. ASPIRIN [Concomitant]
  5. IBUPROFEN [Concomitant]
  6. SYMBICORT [Suspect]
     Indication: BRONCHITIS CHRONIC
     Route: 055

REACTIONS (5)
  - DYSPNOEA [None]
  - SWELLING FACE [None]
  - SINUSITIS [None]
  - INCREASED UPPER AIRWAY SECRETION [None]
  - HEADACHE [None]
